FAERS Safety Report 24169141 (Version 1)
Quarter: 2024Q3

REPORT INFORMATION
  Report Type: Spontaneous
  Country: CA (occurrence: None)
  Receive Date: 20240802
  Receipt Date: 20240802
  Transmission Date: 20241017
  Serious: Yes (Other)
  Sender: ASTRAZENECA
  Company Number: 2020SF30819

PATIENT
  Age: 38 Year
  Sex: Male

DRUGS (11)
  1. BUDESONIDE\FORMOTEROL FUMARATE [Suspect]
     Active Substance: BUDESONIDE\FORMOTEROL FUMARATE
     Indication: Product used for unknown indication
     Dosage: 2.0DF UNKNOWN
     Route: 055
  2. QVAR [Suspect]
     Active Substance: BECLOMETHASONE DIPROPIONATE
     Indication: Product used for unknown indication
  3. FLUTICASONE PROPIONATE [Suspect]
     Active Substance: FLUTICASONE PROPIONATE
     Indication: Asthma
  4. ATROVENT [Suspect]
     Active Substance: IPRATROPIUM BROMIDE
     Indication: Product used for unknown indication
  5. NUCALA [Suspect]
     Active Substance: MEPOLIZUMAB
     Indication: Asthma
     Dosage: 100.0MG UNKNOWN
     Route: 042
  6. SINGULAIR [Suspect]
     Active Substance: MONTELUKAST SODIUM
     Indication: Product used for unknown indication
  7. PREDNISONE [Suspect]
     Active Substance: PREDNISONE
     Indication: Product used for unknown indication
  8. VENTOLIN [Suspect]
     Active Substance: ALBUTEROL SULFATE
     Indication: Asthma
  9. SPIRIVA [Suspect]
     Active Substance: TIOTROPIUM BROMIDE MONOHYDRATE
     Indication: Product used for unknown indication
  10. PANTOPRAZOLE SODIUM ANHYDROUS [Concomitant]
     Active Substance: PANTOPRAZOLE SODIUM ANHYDROUS
     Indication: Gastrooesophageal reflux disease
  11. RANITIDINE [Concomitant]
     Active Substance: RANITIDINE
     Indication: Gastrooesophageal reflux disease

REACTIONS (5)
  - Eosinophilia [Not Recovered/Not Resolved]
  - Painful respiration [Not Recovered/Not Resolved]
  - Reversible airways obstruction [Not Recovered/Not Resolved]
  - Wheezing [Not Recovered/Not Resolved]
  - Drug ineffective [Not Recovered/Not Resolved]
